FAERS Safety Report 7966720-7 (Version None)
Quarter: 2011Q4

REPORT INFORMATION
  Report Type: 
  Country: None (occurrence: None)
  Receive Date: 20111209
  Receipt Date: 20111205
  Transmission Date: 20120403
  Serious: No
  Sender: FDA-Public Use
  Company Number: US-BIOGENIDEC-2011BI046065

PATIENT
  Sex: Female

DRUGS (3)
  1. AVONEX [Concomitant]
     Indication: MULTIPLE SCLEROSIS
     Route: 030
  2. TYSABRI [Suspect]
     Indication: MULTIPLE SCLEROSIS
     Route: 042
     Dates: start: 20080604, end: 20090616
  3. TYSABRI [Suspect]
     Route: 042
     Dates: start: 20110822

REACTIONS (3)
  - NASOPHARYNGITIS [None]
  - FATIGUE [None]
  - MULTIPLE SCLEROSIS RELAPSE [None]
